FAERS Safety Report 24762569 (Version 1)
Quarter: 2024Q4

REPORT INFORMATION
  Report Type: Spontaneous
  Country: ES (occurrence: ES)
  Receive Date: 20241221
  Receipt Date: 20241221
  Transmission Date: 20250115
  Serious: Yes (Life-Threatening, Hospitalization, Other)
  Sender: AMGEN
  Company Number: ES-AMGEN-ESPSP2024250120

PATIENT

DRUGS (2)
  1. ADALIMUMAB [Suspect]
     Active Substance: ADALIMUMAB
     Indication: Maternal exposure during pregnancy
     Dosage: UNK
     Route: 064
  2. ADALIMUMAB [Suspect]
     Active Substance: ADALIMUMAB
     Indication: Maternal exposure during breast feeding
     Dosage: UNK
     Route: 063

REACTIONS (12)
  - Intensive care [Unknown]
  - Unevaluable event [Unknown]
  - Adverse event [Unknown]
  - Premature baby [Unknown]
  - Low birth weight baby [Unknown]
  - Foetal exposure during pregnancy [Unknown]
  - Exposure via breast milk [Unknown]
  - Hypoacusis [Unknown]
  - Surgery [Unknown]
  - Visual impairment [Unknown]
  - Hypersensitivity [Unknown]
  - Infection [Unknown]
